FAERS Safety Report 6916348-2 (Version None)
Quarter: 2010Q3

REPORT INFORMATION
  Report Type: 
  Country: None (occurrence: None)
  Receive Date: 20100810
  Receipt Date: 20071130
  Transmission Date: 20110219
  Serious: No
  Sender: FDA-Public Use
  Company Number: US-PFIZER INC-2007070803

PATIENT
  Sex: Male

DRUGS (2)
  1. LOPID [Suspect]
  2. NIACIN [Suspect]

REACTIONS (1)
  - HOT FLUSH [None]
